FAERS Safety Report 16198373 (Version 1)
Quarter: 2019Q2

REPORT INFORMATION
  Report Type: Spontaneous
  Country: KR (occurrence: KR)
  Receive Date: 20190415
  Receipt Date: 20190415
  Transmission Date: 20190711
  Serious: Yes (Other)
  Sender: FDA-Public Use
  Company Number: KR-BAYER-2019-074950

PATIENT
  Age: 33 Year
  Sex: Female

DRUGS (2)
  1. ASPIRIN. [Suspect]
     Active Substance: ASPIRIN
     Dosage: UNK
  2. LOW MOLECULAR WEIGHT HEPARIN [Interacting]
     Active Substance: UNSPECIFIED INGREDIENT

REACTIONS (5)
  - Renal haemorrhage [None]
  - Labelled drug-drug interaction medication error [None]
  - Contraindicated product administered [None]
  - Arterial rupture [None]
  - Retroperitoneal haematoma [None]
